FAERS Safety Report 24175243 (Version 3)
Quarter: 2024Q4

REPORT INFORMATION
  Report Type: Spontaneous
  Country: US (occurrence: US)
  Receive Date: 20240805
  Receipt Date: 20241219
  Transmission Date: 20250115
  Serious: No
  Sender: MILLICENT HOLDINGS
  Company Number: US-Millicent Holdings Ltd.-MILL20241057

PATIENT
  Age: 63 Year
  Sex: Female

DRUGS (2)
  1. INTRAROSA [Suspect]
     Active Substance: PRASTERONE
     Indication: Atrophic vulvovaginitis
     Dosage: 1 INSERT
     Route: 067
  2. INTRAROSA [Suspect]
     Active Substance: PRASTERONE
     Indication: Vaginal disorder

REACTIONS (3)
  - Off label use [Not Recovered/Not Resolved]
  - Drug ineffective for unapproved indication [Recovering/Resolving]
  - Product dose omission issue [Recovered/Resolved]

NARRATIVE: CASE EVENT DATE: 20240101
